FAERS Safety Report 10853462 (Version 1)
Quarter: 2015Q1

REPORT INFORMATION
  Report Type: Spontaneous
  Country: US (occurrence: US)
  Receive Date: 20150223
  Receipt Date: 20150223
  Transmission Date: 20150721
  Serious: No
  Sender: FDA-Public Use
  Company Number: US-BIOGENIDEC-2015BI012840

PATIENT
  Age: 55 Year
  Sex: Female

DRUGS (6)
  1. VENLAFAXINE HCI [Concomitant]
  2. OXYBUTYNIN CHLORIDE ER [Concomitant]
  3. AMANTADINE HCI [Concomitant]
  4. TECFIDERA [Suspect]
     Active Substance: DIMETHYL FUMARATE
     Indication: MULTIPLE SCLEROSIS
     Route: 048
  5. AMPYRA [Concomitant]
     Active Substance: DALFAMPRIDINE
  6. NALTREXONE HCI [Concomitant]

REACTIONS (2)
  - Drug ineffective [Unknown]
  - Multiple sclerosis [Unknown]
